FAERS Safety Report 12422764 (Version 2)
Quarter: 2016Q2

REPORT INFORMATION
  Report Type: Report from Study
  Country: US (occurrence: US)
  Receive Date: 20160601
  Receipt Date: 20160616
  Transmission Date: 20160815
  Serious: Yes (Death)
  Sender: FDA-Public Use
  Company Number: PHEH2016US013485

PATIENT
  Sex: Female
  Weight: 50.4 kg

DRUGS (1)
  1. VOTRIENT [Suspect]
     Active Substance: PAZOPANIB HYDROCHLORIDE
     Indication: SARCOMA
     Dosage: 200 MG/KG, QD
     Route: 048
     Dates: start: 20140513, end: 201602

REACTIONS (2)
  - Malignant neoplasm progression [Fatal]
  - Leiomyosarcoma [Fatal]
